FAERS Safety Report 15845798 (Version 1)
Quarter: 2019Q1

REPORT INFORMATION
  Report Type: Spontaneous
  Country: IT (occurrence: IT)
  Receive Date: 20190120
  Receipt Date: 20190120
  Transmission Date: 20190417
  Serious: Yes (Hospitalization, Other)
  Sender: FDA-Public Use
  Company Number: IT-AUROBINDO-AUR-APL-2019-001592

PATIENT
  Age: 63 Year
  Sex: Male

DRUGS (17)
  1. TETRACYCLINE [Suspect]
     Active Substance: TETRACYCLINE
     Indication: KERATITIS FUNGAL
     Route: 065
  2. PREDNISONE. [Concomitant]
     Active Substance: PREDNISONE
     Dosage: UNK
     Route: 065
  3. DEXAMETHASONE. [Concomitant]
     Active Substance: DEXAMETHASONE
     Indication: KERATITIS FUNGAL
  4. ATROPINE. [Suspect]
     Active Substance: ATROPINE
     Indication: COMPLICATIONS OF TRANSPLANT SURGERY
     Dosage: UNK
     Route: 065
  5. DEXAMETHASONE. [Concomitant]
     Active Substance: DEXAMETHASONE
     Indication: COMPLICATIONS OF TRANSPLANT SURGERY
     Route: 065
  6. CEFTRIAXONE. [Suspect]
     Active Substance: CEFTRIAXONE
     Indication: KERATITIS FUNGAL
     Route: 042
  7. VORICONAZOLE. [Suspect]
     Active Substance: VORICONAZOLE
     Dosage: UNK
     Route: 065
  8. NETILMICIN [Concomitant]
     Active Substance: NETILMICIN
     Indication: COMPLICATIONS OF TRANSPLANT SURGERY
  9. VORICONAZOLE. [Suspect]
     Active Substance: VORICONAZOLE
     Indication: KERATITIS FUNGAL
     Dosage: 1 DROP,1 HOUR
     Route: 047
  10. CHLORAMPHENICOL [Concomitant]
     Active Substance: CHLORAMPHENICOL
     Indication: PRODUCT USED FOR UNKNOWN INDICATION
     Dosage: UNK
     Route: 065
  11. NETILMICIN [Concomitant]
     Active Substance: NETILMICIN
     Indication: KERATITIS FUNGAL
     Route: 065
  12. CEFTRIAXONE. [Suspect]
     Active Substance: CEFTRIAXONE
     Indication: COMPLICATIONS OF TRANSPLANT SURGERY
     Dosage: UNK
     Route: 065
  13. VORICONAZOLE. [Suspect]
     Active Substance: VORICONAZOLE
     Dosage: UNK
     Route: 057
  14. ATROPINE. [Suspect]
     Active Substance: ATROPINE
     Indication: KERATITIS FUNGAL
     Dosage: UNK
     Route: 065
  15. PREDNISONE. [Concomitant]
     Active Substance: PREDNISONE
     Indication: PRODUCT USED FOR UNKNOWN INDICATION
     Dosage: 25 MG
     Route: 065
  16. VORICONAZOLE. [Suspect]
     Active Substance: VORICONAZOLE
     Dosage: UNK
     Route: 062
  17. TETRACYCLINE [Suspect]
     Active Substance: TETRACYCLINE
     Route: 065

REACTIONS (3)
  - Drug resistance [Unknown]
  - Keratitis fungal [Unknown]
  - Complications of transplant surgery [Unknown]

NARRATIVE: CASE EVENT DATE: 2015
